FAERS Safety Report 26102291 (Version 1)
Quarter: 2025Q4

REPORT INFORMATION
  Report Type: Spontaneous
  Country: CN (occurrence: CN)
  Receive Date: 20251128
  Receipt Date: 20251128
  Transmission Date: 20260117
  Serious: Yes (Hospitalization)
  Sender: COHERUS
  Company Number: CN-SHANGHAI JUNSHI BIOSCIENCES CO., LTD.-CN2025016597

PATIENT

DRUGS (9)
  1. TORIPALIMAB [Suspect]
     Active Substance: TORIPALIMAB
     Indication: Squamous cell carcinoma of lung
     Dosage: 240 MG
     Route: 041
     Dates: start: 20250924, end: 20251121
  2. PACLITAXEL [Concomitant]
     Active Substance: PACLITAXEL
     Indication: Squamous cell carcinoma of lung
     Dosage: 180 MG
     Route: 041
     Dates: start: 20250711, end: 20250711
  3. PACLITAXEL [Concomitant]
     Active Substance: PACLITAXEL
     Dosage: 180 MG
     Route: 041
     Dates: start: 20250802, end: 20250802
  4. PACLITAXEL [Concomitant]
     Active Substance: PACLITAXEL
     Dosage: 180 MG
     Route: 041
     Dates: start: 20250905, end: 20250905
  5. PACLITAXEL [Concomitant]
     Active Substance: PACLITAXEL
     Dosage: 180 MG
     Route: 041
     Dates: start: 20250927, end: 20250930
  6. CISPLATIN [Concomitant]
     Active Substance: CISPLATIN
     Indication: Squamous cell carcinoma of lung
     Dosage: 34 MG
     Route: 041
     Dates: start: 20250711, end: 20250711
  7. CISPLATIN [Concomitant]
     Active Substance: CISPLATIN
     Dosage: 34 MG
     Route: 041
     Dates: start: 20250802, end: 20250802
  8. CISPLATIN [Concomitant]
     Active Substance: CISPLATIN
     Dosage: 34 MG
     Route: 041
     Dates: start: 20250905, end: 20250905
  9. CISPLATIN [Concomitant]
     Active Substance: CISPLATIN
     Dosage: 34 MG
     Route: 041
     Dates: start: 20250927, end: 20251001

REACTIONS (2)
  - Erythema multiforme [Recovering/Resolving]
  - Drug eruption [Recovering/Resolving]

NARRATIVE: CASE EVENT DATE: 20251005
